FAERS Safety Report 5486600-9 (Version None)
Quarter: 2007Q3

REPORT INFORMATION
  Report Type: 
  Country: None (occurrence: None)
  Receive Date: 20070920
  Receipt Date: 20070614
  Transmission Date: 20080115
  Serious: No
  Sender: FDA-Public Use
  Company Number: 07P-163-0371592-00

PATIENT
  Sex: 0

DRUGS (1)
  1. DEPAKOTE ER [Suspect]
     Indication: BIPOLAR DISORDER

REACTIONS (3)
  - ANAPHYLACTIC REACTION [None]
  - BLOOD PRESSURE FLUCTUATION [None]
  - RASH [None]
